FAERS Safety Report 4463004-9 (Version None)
Quarter: 2004Q3

REPORT INFORMATION
  Report Type: 
  Country: None (occurrence: None)
  Receive Date: 20040927
  Receipt Date: 20040913
  Transmission Date: 20050211
  Serious: Yes (Life-Threatening, Other)
  Sender: FDA-Public Use
  Company Number: 2004048512

PATIENT
  Age: 77 Year
  Sex: Female

DRUGS (10)
  1. DIFLUCAN [Suspect]
     Indication: FUNGAL INFECTION
     Dosage: 100 MG (100 MG, 1 IN 1 D); ORAL
     Route: 048
     Dates: start: 20040618, end: 20040714
  2. FUROSEMIDE [Suspect]
     Indication: CARDIAC FAILURE
     Dosage: 20 MG (20 MG, 1 IN 1 D); ORAL
     Route: 048
     Dates: start: 20040428, end: 20040727
  3. PRODIF (FOSFLUCONAZOLE ) (FOSFLUCONAZOLE) [Suspect]
     Indication: FUNGAL INFECTION
     Dosage: 126.1 MG, (126.1 MG, 1 IN 1 D) INTRAVENOUS
     Route: 042
     Dates: start: 20040604, end: 20040618
  4. FAMOTIDINE [Suspect]
     Indication: GASTRIC ULCER
     Dosage: 40 MG (20 MG, 2 IN 1 D); ORAL
     Route: 048
     Dates: start: 20040615, end: 20040716
  5. VANCOMYCIN HCL [Suspect]
     Indication: PNEUMONIA STAPHYLOCOCCAL
     Dosage: UNK (0.75 GRAM, 1 D); INTRAVENOUS
     Route: 042
     Dates: start: 20040505, end: 20040515
  6. ISEPAMICIN SULFATE (ISEPAMICIN SULFATE) [Suspect]
     Indication: SERRATIA INFECTION
     Dosage: 200 MG (200 MG, 1 IN 1 D); INTRAVENOUS
     Route: 042
     Dates: start: 20040526, end: 20040528
  7. ISEPAMICIN SULFATE (ISEPAMICIN SULFATE) [Suspect]
     Indication: STAPHYLOCOCCAL INFECTION
     Dosage: 200 MG (200 MG, 1 IN 1 D); INTRAVENOUS
     Route: 042
     Dates: start: 20040526, end: 20040528
  8. DIGOXIN [Concomitant]
  9. WARFARIN SODIUM [Concomitant]
  10. CARVEDILOL [Concomitant]

REACTIONS (18)
  - ARRHYTHMIA [None]
  - BLOOD BETA-D-GLUCAN INCREASED [None]
  - BLOOD POTASSIUM DECREASED [None]
  - BLOOD SODIUM DECREASED [None]
  - CARDIAC FAILURE [None]
  - CARDIO-RESPIRATORY ARREST [None]
  - CATHETER RELATED INFECTION [None]
  - DEHYDRATION [None]
  - DIARRHOEA [None]
  - GASTRIC ULCER [None]
  - GASTROINTESTINAL HAEMORRHAGE [None]
  - GENERALISED OEDEMA [None]
  - PNEUMONIA STAPHYLOCOCCAL [None]
  - RENAL FAILURE ACUTE [None]
  - SERRATIA INFECTION [None]
  - SYSTEMIC MYCOSIS [None]
  - URINARY TRACT INFECTION [None]
  - ZINC DEFICIENCY [None]
